FAERS Safety Report 14181643 (Version 4)
Quarter: 2018Q3

REPORT INFORMATION
  Report Type: Report from Study
  Country: None (occurrence: CO)
  Receive Date: 20171113
  Receipt Date: 20180821
  Transmission Date: 20181010
  Serious: Yes (Other)
  Sender: FDA-Public Use
  Company Number: CO-ABBVIE-17K-036-2159216-00

PATIENT
  Age: 49 Year
  Sex: Female
  Weight: 50 kg

DRUGS (1)
  1. HUMIRA [Suspect]
     Active Substance: ADALIMUMAB
     Indication: ANKYLOSING SPONDYLITIS
     Route: 058
     Dates: start: 20120221, end: 20171023

REACTIONS (14)
  - Vision blurred [Not Recovered/Not Resolved]
  - Abdominal pain lower [Recovering/Resolving]
  - Ankylosing spondylitis [Recovering/Resolving]
  - Facial pain [Recovering/Resolving]
  - Inflammation [Recovering/Resolving]
  - Respiratory distress [Not Recovered/Not Resolved]
  - Odynophagia [Recovering/Resolving]
  - Laryngitis [Recovering/Resolving]
  - Pain in extremity [Recovered/Resolved]
  - Spinal fracture [Unknown]
  - Vitreous floaters [Unknown]
  - Chest discomfort [Not Recovered/Not Resolved]
  - Chest pain [Unknown]
  - Aortic dilatation [Recovered/Resolved]

NARRATIVE: CASE EVENT DATE: 20170609
